FAERS Safety Report 7409309-0 (Version None)
Quarter: 2011Q2

REPORT INFORMATION
  Report Type: 
  Country: None (occurrence: None)
  Receive Date: 20110412
  Receipt Date: 20110404
  Transmission Date: 20111010
  Serious: Yes (Other)
  Sender: FDA-Public Use
  Company Number: B0712196A

PATIENT
  Age: 62 Year
  Sex: Male

DRUGS (12)
  1. RESTORIL [Concomitant]
     Dosage: 7.5MG PER DAY
     Route: 048
  2. TOPAMAX [Concomitant]
     Dosage: 100MG TWICE PER DAY
     Route: 048
  3. DOLOPHINE HCL [Concomitant]
     Dosage: 10MG FOUR TIMES PER DAY
     Route: 048
  4. ROXICODONE [Concomitant]
     Dosage: 30MG THREE TIMES PER DAY
     Route: 048
  5. KLONOPIN [Concomitant]
     Dosage: .5MG THREE TIMES PER DAY
     Route: 048
  6. LAMICTAL [Suspect]
     Dosage: 150MG FOUR TIMES PER DAY
     Route: 048
  7. K-DUR [Concomitant]
     Dosage: 20MEQ PER DAY
     Route: 048
  8. LYRICA [Concomitant]
     Dosage: 150MG PER DAY
     Route: 048
  9. COLACE [Concomitant]
     Dosage: 100MG UNKNOWN
     Route: 048
  10. LODINE [Concomitant]
     Dosage: 300MG TWICE PER DAY
     Route: 048
  11. CRESTOR [Concomitant]
     Dosage: 5MG PER DAY
     Route: 048
  12. ULTRAM [Concomitant]
     Route: 048

REACTIONS (7)
  - AGGRESSION [None]
  - DRUG SCREEN FALSE POSITIVE [None]
  - PSYCHOTIC DISORDER [None]
  - BLOOD GLUCOSE INCREASED [None]
  - HOSTILITY [None]
  - DELIRIUM [None]
  - AGITATION [None]
